FAERS Safety Report 5327888-4 (Version None)
Quarter: 2007Q2

REPORT INFORMATION
  Report Type: 
  Country: None (occurrence: None)
  Receive Date: 20070517
  Receipt Date: 20070508
  Transmission Date: 20071010
  Serious: Yes (Hospitalization, Other)
  Sender: FDA-Public Use
  Company Number: US-PFIZER INC-2007037268

PATIENT
  Sex: Female
  Weight: 88.5 kg

DRUGS (1)
  1. BEXTRA [Suspect]
     Indication: PAIN
     Dates: start: 20031110, end: 20031113

REACTIONS (1)
  - CEREBROVASCULAR ACCIDENT [None]
